FAERS Safety Report 4938458-1 (Version None)
Quarter: 2006Q1

REPORT INFORMATION
  Report Type: 
  Country: None (occurrence: None)
  Receive Date: 20060302
  Receipt Date: 20060221
  Transmission Date: 20060701
  Serious: Yes (Hospitalization)
  Sender: FDA-Public Use
  Company Number: 2005EU002680

PATIENT
  Age: 61 Year
  Sex: Male

DRUGS (8)
  1. FK506(TACROLIMUS CAPSULES) [Suspect]
     Indication: LIVER TRANSPLANT
     Dosage: 2 MG, D, ORAL
     Route: 048
     Dates: start: 20050703
  2. MYCOPHENOLATE MOFETIL (MYCOPHENOLATE MOFETIL) [Suspect]
     Indication: LIVER TRANSPLANT
     Dosage: 1000 MG, UID/QD/IV NOS; 1000 MG,BID, ORAL
     Route: 042
     Dates: start: 20050628, end: 20050703
  3. MYCOPHENOLATE MOFETIL (MYCOPHENOLATE MOFETIL) [Suspect]
     Indication: LIVER TRANSPLANT
     Dosage: 1000 MG, UID/QD/IV NOS; 1000 MG,BID, ORAL
     Route: 042
     Dates: start: 20050704
  4. DACLIZUMAB(DACLIZUMAB) [Suspect]
     Indication: LIVER TRANSPLANT
     Dosage: 126, MG, UID/QD, IV NOS
     Route: 042
     Dates: start: 20050628, end: 20050705
  5. METHYLPREDNISOLONE [Suspect]
     Indication: LIVER TRANSPLANT
     Dosage: 4 MG, UID/QD
     Dates: start: 20050628, end: 20050921
  6. LORMETAZEPAM (LORMETAZEPAM) [Concomitant]
  7. AMPICILLIN SODIUM [Concomitant]
  8. METOPROLOL TARTRATE [Concomitant]

REACTIONS (2)
  - INFECTIVE SPONDYLITIS [None]
  - OSTEOPENIA [None]
